FAERS Safety Report 9515807 (Version 1)
Quarter: 2013Q1

REPORT INFORMATION
  Report Type: Spontaneous
  Country: US (occurrence: None)
  Receive Date: 20130305
  Receipt Date: 20130305
  Transmission Date: 20140127
  Serious: Yes (Hospitalization)
  Sender: FDA-Public Use
  Company Number: 163-21880-12012092

PATIENT
  Age: 79 Year
  Sex: Female

DRUGS (6)
  1. REVLIMID [Suspect]
     Indication: PLASMA CELL MYELOMA
     Dosage: 10 MG, DAILY X 21 DAYS OUR OF 28, PO
     Route: 048
     Dates: start: 201105, end: 20111202
  2. FUROSEMIDE [Concomitant]
  3. NOVOLOG (INSULIN ASPART) [Concomitant]
  4. NEXIUM [Concomitant]
  5. HYZAAR [Concomitant]
  6. COREG (CARVEDILOL) [Concomitant]

REACTIONS (2)
  - Pulmonary embolism [None]
  - Deep vein thrombosis [None]
